FAERS Safety Report 4549002-5 (Version None)
Quarter: 2004Q4

REPORT INFORMATION
  Report Type: 
  Country: None (occurrence: None)
  Receive Date: 20041227
  Receipt Date: 20041012
  Transmission Date: 20050328
  Serious: No
  Sender: FDA-Public Use
  Company Number: 04P-163-0277026-00

PATIENT
  Age: 67 Year
  Sex: Female
  Weight: 71.2147 kg

DRUGS (7)
  1. HUMIRA [Suspect]
     Indication: RHEUMATOID ARTHRITIS
     Dosage: 40 MG, 1 IN 2 WK, SUBCUTANEOUS
     Route: 058
     Dates: start: 20040517, end: 20040905
  2. HYDROXYCHLOROQUINE PHOSPHATE [Concomitant]
  3. METHOTREXATE [Concomitant]
  4. FOLIC ACID [Concomitant]
  5. METOPROLOL SUCCINATE [Concomitant]
  6. ACETYLSALICYLIC ACID SRT [Concomitant]
  7. ZYTORIN [Concomitant]

REACTIONS (2)
  - LARYNGITIS [None]
  - SINUSITIS [None]
